FAERS Safety Report 5063105-0 (Version None)
Quarter: 2006Q3

REPORT INFORMATION
  Report Type: 
  Country: None (occurrence: None)
  Receive Date: 20060725
  Receipt Date: 20060725
  Transmission Date: 20061208
  Serious: Yes (Disabling)
  Sender: FDA-Public Use
  Company Number: None

PATIENT
  Age: 54 Year
  Sex: Male

DRUGS (1)
  1. TIGECYCLINE  50 MG WYETH [Suspect]
     Indication: STAPHYLOCOCCAL INFECTION
     Dosage: 50 MG Q12H IV BOLUS
     Route: 042
     Dates: start: 20060416, end: 20060421

REACTIONS (1)
  - LIVER FUNCTION TEST ABNORMAL [None]
